FAERS Safety Report 8285300-X (Version None)
Quarter: 2012Q2

REPORT INFORMATION
  Report Type: 
  Country: None (occurrence: None)
  Receive Date: 20120413
  Receipt Date: 20110516
  Transmission Date: 20120825
  Serious: No
  Sender: FDA-Public Use
  Company Number: US-ASTRAZENECA-2011SE29893

PATIENT
  Sex: Male

DRUGS (5)
  1. LIPITOR [Concomitant]
  2. TOPROL-XL [Suspect]
     Route: 048
  3. PLAVIX [Concomitant]
  4. NEXIUM [Suspect]
     Route: 048
  5. ASPIRIN [Concomitant]

REACTIONS (2)
  - NECK PAIN [None]
  - BACK PAIN [None]
